FAERS Safety Report 23816801 (Version 2)
Quarter: 2024Q2

REPORT INFORMATION
  Report Type: Spontaneous
  Country: MA (occurrence: MA)
  Receive Date: 20240504
  Receipt Date: 20240515
  Transmission Date: 20240717
  Serious: Yes (Other)
  Sender: FDA-Public Use
  Company Number: MA-002147023-NVSC2024MA092001

PATIENT
  Age: 44 Year
  Sex: Female

DRUGS (2)
  1. COSENTYX [Suspect]
     Active Substance: SECUKINUMAB
     Indication: Rheumatic disorder
     Dosage: 300 MG, QW
     Route: 058
     Dates: start: 202401, end: 20240429
  2. GADOLINIUM [Suspect]
     Active Substance: GADOLINIUM
     Indication: Product used for unknown indication
     Dosage: UNK
     Route: 065

REACTIONS (16)
  - Hydrocephalus [Unknown]
  - Blindness transient [Unknown]
  - Syringomyelia [Unknown]
  - Diabetes mellitus [Not Recovered/Not Resolved]
  - Papilloedema [Unknown]
  - Flat anterior chamber of eye [Unknown]
  - Arachnoiditis [Unknown]
  - Diarrhoea [Not Recovered/Not Resolved]
  - Tremor [Not Recovered/Not Resolved]
  - Dyspnoea [Not Recovered/Not Resolved]
  - Asthenia [Not Recovered/Not Resolved]
  - Headache [Not Recovered/Not Resolved]
  - Benign enlargement of the subarachnoid spaces [Unknown]
  - Papillary muscle disorder [Unknown]
  - Visual field defect [Unknown]
  - Retinal disorder [Unknown]

NARRATIVE: CASE EVENT DATE: 20240101
